FAERS Safety Report 14708835 (Version 5)
Quarter: 2018Q2

REPORT INFORMATION
  Report Type: Report from Study
  Country: FR (occurrence: FR)
  Receive Date: 20180403
  Receipt Date: 20180607
  Transmission Date: 20180711
  Serious: Yes (Death, Hospitalization)
  Sender: FDA-Public Use
  Company Number: PHHO2018FR004431

PATIENT
  Age: 47 Year
  Sex: Male
  Weight: 63 kg

DRUGS (5)
  1. METHOTREXATE. [Concomitant]
     Active Substance: METHOTREXATE
     Indication: NEOPLASM
     Dosage: 1670 MG, QD (D1)
     Route: 042
     Dates: start: 20180310, end: 20180318
  2. ARACYTINE [Concomitant]
     Active Substance: CYTARABINE
     Indication: NEOPLASM
     Dosage: 40 MG, UNK
     Route: 042
     Dates: start: 20180209, end: 20180318
  3. AMN107 [Suspect]
     Active Substance: NILOTINIB
     Indication: NEOPLASM
     Dosage: 800 MG, QD
     Route: 048
     Dates: start: 20180209, end: 20180325
  4. VINCRISTINE [Concomitant]
     Active Substance: VINCRISTINE
     Indication: NEOPLASM
     Dosage: 2 MG, QD (D1 D8 D18 D22)
     Route: 042
     Dates: start: 20180209, end: 20180302
  5. DEPO-MEDROL [Concomitant]
     Active Substance: METHYLPREDNISOLONE ACETATE
     Indication: NEOPLASM
     Dosage: 40 MG, UNK
     Route: 042
     Dates: start: 20180209, end: 20180318

REACTIONS (3)
  - Pericarditis [Fatal]
  - Myocardial infarction [Fatal]
  - Cardiac arrest [Fatal]

NARRATIVE: CASE EVENT DATE: 20180324
